FAERS Safety Report 20379201 (Version 3)
Quarter: 2022Q1

REPORT INFORMATION
  Report Type: Spontaneous
  Country: US (occurrence: US)
  Receive Date: 20220126
  Receipt Date: 20220307
  Transmission Date: 20220423
  Serious: Yes (Hospitalization)
  Sender: FDA-Public Use
  Company Number: US-GILEAD-2022-0566677

PATIENT
  Age: 5 Year
  Sex: Female
  Weight: 30.3 kg

DRUGS (16)
  1. REMDESIVIR [Suspect]
     Active Substance: REMDESIVIR
     Indication: COVID-19
     Dosage: 150 MG, ONCE
     Route: 042
     Dates: start: 20220105, end: 20220105
  2. REMDESIVIR [Suspect]
     Active Substance: REMDESIVIR
     Dosage: 80 MG, QD
     Route: 042
     Dates: start: 20220106, end: 20220108
  3. CEFTRIAXONE [Concomitant]
     Active Substance: CEFTRIAXONE
     Dosage: UNK
     Dates: start: 20220105, end: 20220106
  4. LIDOCAINE [Concomitant]
     Active Substance: LIDOCAINE
     Dosage: UNK
     Dates: start: 20220105, end: 20220110
  5. KEPPRA [Concomitant]
     Active Substance: LEVETIRACETAM
     Dosage: UNK
     Dates: start: 20220105, end: 20220110
  6. KEPPRA [Concomitant]
     Active Substance: LEVETIRACETAM
     Dosage: UNK
     Dates: start: 20220113, end: 20220114
  7. PEPCID [Concomitant]
     Active Substance: FAMOTIDINE
     Dosage: UNK
     Dates: start: 20220105, end: 20220110
  8. DDAVP [Concomitant]
     Active Substance: DESMOPRESSIN ACETATE
     Dosage: .05 DOSAGE FORM
  9. DDAVP [Concomitant]
     Active Substance: DESMOPRESSIN ACETATE
     Dosage: .5 MG, BID
  10. DDAVP [Concomitant]
     Active Substance: DESMOPRESSIN ACETATE
     Dosage: .5 MG, BID
  11. HYDROCORTISONE [Concomitant]
     Active Substance: HYDROCORTISONE
     Dosage: UNK
     Dates: start: 20220105, end: 20220110
  12. SODIUM CHLORIDE [Concomitant]
     Active Substance: SODIUM CHLORIDE
     Dosage: UNK
     Dates: start: 20220105, end: 20220105
  13. SODIUM CHLORIDE [Concomitant]
     Active Substance: SODIUM CHLORIDE
     Dosage: UNK
     Dates: start: 20220112, end: 20220112
  14. ALBUTEROL [Concomitant]
     Active Substance: ALBUTEROL
     Dosage: UNK
     Dates: start: 20220105, end: 20220109
  15. ALBUTEROL SULFATE [Concomitant]
     Active Substance: ALBUTEROL SULFATE
     Dosage: UNK
     Dates: start: 20220109, end: 20220110
  16. PHENYLEPHRINE [Concomitant]
     Active Substance: PHENYLEPHRINE HYDROCHLORIDE

REACTIONS (1)
  - Blood sodium increased [Recovered/Resolved]

NARRATIVE: CASE EVENT DATE: 20220112
